FAERS Safety Report 5369295-4 (Version None)
Quarter: 2007Q2

REPORT INFORMATION
  Report Type: 
  Country: None (occurrence: None)
  Receive Date: 20070625
  Receipt Date: 20070301
  Transmission Date: 20071010
  Serious: No
  Sender: FDA-Public Use
  Company Number: US-ASTRAZENECA-2007UW03989

PATIENT
  Age: 65 Year
  Sex: Male

DRUGS (16)
  1. CRESTOR [Suspect]
     Route: 048
     Dates: start: 20060401
  2. ALBUTEROL [Concomitant]
  3. ATROVENT [Concomitant]
  4. ALBUTEROL [Concomitant]
  5. ZANTAC [Concomitant]
  6. ALLEGRA [Concomitant]
  7. ACCUPRIL [Concomitant]
  8. ASPIRIN [Concomitant]
  9. HYTRIN [Concomitant]
  10. RHINOCORT [Concomitant]
  11. SYNTHROID [Concomitant]
  12. HYDROCHLOROTHIAZIDE [Concomitant]
  13. ADVAIR DISKUS 100/50 [Concomitant]
  14. SPIRIVA [Concomitant]
  15. FORTICAL [Concomitant]
  16. SLO-BID [Concomitant]

REACTIONS (4)
  - ASTHENIA [None]
  - CHEST PAIN [None]
  - MUSCLE SPASMS [None]
  - PYREXIA [None]
